FAERS Safety Report 8382406-1 (Version None)
Quarter: 2012Q2

REPORT INFORMATION
  Report Type: 
  Country: None (occurrence: None)
  Receive Date: 20120524
  Receipt Date: 20120516
  Transmission Date: 20120825
  Serious: Yes (Other)
  Sender: FDA-Public Use
  Company Number: PHHY2012BR042894

PATIENT
  Age: 74 Year
  Sex: Female

DRUGS (1)
  1. DIOVAN [Suspect]
     Dosage: 2 DF, PER DAY

REACTIONS (3)
  - ELECTROCARDIOGRAM AMBULATORY ABNORMAL [None]
  - BLOOD PRESSURE INCREASED [None]
  - BLOOD PRESSURE AMBULATORY ABNORMAL [None]
